FAERS Safety Report 7622952-9 (Version None)
Quarter: 2011Q3

REPORT INFORMATION
  Report Type: 
  Country: None (occurrence: None)
  Receive Date: 20110720
  Receipt Date: 20110708
  Transmission Date: 20111222
  Serious: Yes (Hospitalization)
  Sender: FDA-Public Use
  Company Number: US-AMGEN-USASP2011023702

PATIENT
  Sex: Female

DRUGS (2)
  1. PROLIA [Suspect]
     Indication: OSTEOPOROSIS POSTMENOPAUSAL
  2. PREDNISONE [Suspect]

REACTIONS (3)
  - SEPSIS [None]
  - CLOSTRIDIAL INFECTION [None]
  - POSTOPERATIVE WOUND INFECTION [None]
